FAERS Safety Report 24387519 (Version 2)
Quarter: 2024Q4

REPORT INFORMATION
  Report Type: Spontaneous
  Country: US (occurrence: US)
  Receive Date: 20241002
  Receipt Date: 20241003
  Transmission Date: 20250114
  Serious: No
  Sender: AMGEN
  Company Number: US-AMGEN-USASP2024192989

PATIENT
  Age: 61 Year
  Sex: Male

DRUGS (3)
  1. TEPEZZA [Suspect]
     Active Substance: TEPROTUMUMAB-TRBW
     Indication: Endocrine ophthalmopathy
     Dosage: UNK UNK, Q3WK FIRST INFUSION EVERY 3 WEEKS FOR A TOTAL OF 8 INFUSIONS.
     Route: 042
     Dates: start: 202403
  2. TEPEZZA [Suspect]
     Active Substance: TEPROTUMUMAB-TRBW
     Dosage: UNK UNK, Q3WK THIRD INFUSION TRETAMNET EVERY 3 WEEKS FOR A TOTAL OF 8 INFUSIONS.
     Route: 042
     Dates: start: 2024
  3. TEPEZZA [Suspect]
     Active Substance: TEPROTUMUMAB-TRBW
     Dosage: UNK UNK, Q3WK LAST INFUSION EVERY 3 WEEKS FOR A TOTAL OF 8 INFUSIONS.
     Route: 042
     Dates: start: 20240701, end: 20240701

REACTIONS (2)
  - Taste disorder [Not Recovered/Not Resolved]
  - Tinnitus [Not Recovered/Not Resolved]

NARRATIVE: CASE EVENT DATE: 20240101
